FAERS Safety Report 8054490-6 (Version None)
Quarter: 2012Q1

REPORT INFORMATION
  Report Type: 
  Country: None (occurrence: None)
  Receive Date: 20120118
  Receipt Date: 20120109
  Transmission Date: 20120608
  Serious: Yes (Other)
  Sender: FDA-Public Use
  Company Number: GB-MERCK-1201GBR00020

PATIENT
  Age: 85 Year
  Sex: Male

DRUGS (7)
  1. PRINIVIL [Concomitant]
     Route: 048
  2. BISOPROLOL [Concomitant]
     Route: 048
  3. LANSOPRAZOLE [Concomitant]
     Route: 065
  4. ACETAMINOPHEN [Concomitant]
     Route: 065
  5. ASPIRIN [Concomitant]
     Route: 065
  6. QUININE SULFATE [Concomitant]
     Route: 065
  7. PROSCAR [Suspect]
     Route: 048
     Dates: end: 20111201

REACTIONS (1)
  - CEREBROVASCULAR ACCIDENT [None]
